FAERS Safety Report 23437613 (Version 1)
Quarter: 2024Q1

REPORT INFORMATION
  Report Type: Spontaneous
  Country: US (occurrence: None)
  Receive Date: 20240123
  Receipt Date: 20240123
  Transmission Date: 20240410
  Serious: Yes (Hospitalization)
  Sender: FDA-Public Use
  Company Number: None

PATIENT
  Sex: Male

DRUGS (1)
  1. OJJAARA [Suspect]
     Active Substance: MOMELOTINIB DIHYDROCHLORIDE MONOHYDRATE
     Indication: Myeloproliferative neoplasm
     Dosage: FREQUENCY : DAILY;?
     Route: 048
     Dates: start: 20231208

REACTIONS (16)
  - Diarrhoea [None]
  - Transfusion [None]
  - Platelet count decreased [None]
  - Red blood cell count decreased [None]
  - Biopsy bone marrow abnormal [None]
  - Reticulocytosis [None]
  - Fall [None]
  - Skin laceration [None]
  - Skin laceration [None]
  - Skin laceration [None]
  - Transfusion reaction [None]
  - Blood pressure decreased [None]
  - Dementia [None]
  - Depression [None]
  - Aggression [None]
  - Red blood cell transfusion [None]
